FAERS Safety Report 9113795 (Version 1)
Quarter: 2013Q1

REPORT INFORMATION
  Report Type: Report from Study
  Country: SE (occurrence: SE)
  Receive Date: 20130208
  Receipt Date: 20130208
  Transmission Date: 20140127
  Serious: Yes (Death, Other)
  Sender: FDA-Public Use
  Company Number: SE-OTSUKA-EU-2011-10282

PATIENT
  Sex: Female
  Weight: 60 kg

DRUGS (9)
  1. SAMSCA [Suspect]
     Indication: INAPPROPRIATE ANTIDIURETIC HORMONE SECRETION
     Dosage: UNK DF DOSAGE FORM, DAILY DOSE
     Route: 048
     Dates: start: 20110325, end: 20110827
  2. SAMSCA [Suspect]
     Dosage: 15 MG MILLIGRAM(S), DAILY DOSE
     Route: 048
     Dates: start: 20110828, end: 20110831
  3. SAMSCA [Suspect]
     Dosage: 30 MG MILLIGRAM(S), DAILY DOSE
     Route: 048
     Dates: start: 20110901
  4. SAMSCA [Suspect]
     Dosage: 15 MG MILLIGRAM(S), QOD
     Route: 048
     Dates: start: 20110909, end: 20110919
  5. SAMSCA [Suspect]
     Dosage: 30 MG MILLIGRAM(S), QOD
     Route: 048
     Dates: start: 20110909, end: 20110919
  6. SAMSCA [Suspect]
     Dosage: 30 MG MILLIGRAM(S), DAILY DOSE
     Route: 048
     Dates: start: 20110920, end: 20111006
  7. SAMSCA [Suspect]
     Dosage: 15 MG MILLIGRAM(S), DAILY DOSE
     Route: 048
     Dates: start: 20111007, end: 20111019
  8. CISPLATIN [Concomitant]
     Indication: CERVIX CARCINOMA
     Dosage: UNK UNK, UNKNOWN
     Route: 065
     Dates: start: 201101
  9. ETOPOSIDE [Concomitant]
     Indication: CERVIX CARCINOMA
     Dosage: UNK UNK, UNKNOWN
     Route: 065
     Dates: start: 201101

REACTIONS (5)
  - Rapid correction of hyponatraemia [Recovered/Resolved]
  - Rapid correction of hyponatraemia [Recovered/Resolved]
  - Cervix carcinoma [Fatal]
  - Wrong technique in drug usage process [Unknown]
  - Incorrect drug administration rate [Unknown]
